FAERS Safety Report 19150620 (Version 2)
Quarter: 2021Q2

REPORT INFORMATION
  Report Type: Spontaneous
  Country: AU (occurrence: AU)
  Receive Date: 20210418
  Receipt Date: 20210630
  Transmission Date: 20210717
  Serious: Yes (Other)
  Sender: FDA-Public Use
  Company Number: AU-BAUSCH-BL-2021-012704

PATIENT
  Sex: Male

DRUGS (2)
  1. PREDNISOLONE. [Suspect]
     Active Substance: PREDNISOLONE
     Indication: PRODUCT USED FOR UNKNOWN INDICATION
     Route: 065
  2. SULFASALAZINE. [Suspect]
     Active Substance: SULFASALAZINE
     Indication: PRODUCT USED FOR UNKNOWN INDICATION
     Route: 065

REACTIONS (8)
  - Renal aplasia [Unknown]
  - Talipes [Unknown]
  - Pulmonary hypoplasia [Unknown]
  - Stillbirth [Unknown]
  - Premature baby [Unknown]
  - Potter^s syndrome [Unknown]
  - Maternal exposure during pregnancy [Unknown]
  - Teratogenicity [Unknown]
